FAERS Safety Report 12010620 (Version 3)
Quarter: 2017Q1

REPORT INFORMATION
  Report Type: Spontaneous
  Country: CA (occurrence: CA)
  Receive Date: 20160205
  Receipt Date: 20170306
  Transmission Date: 20170428
  Serious: Yes (Other)
  Sender: FDA-Public Use
  Company Number: CA-JNJFOC-20160122879

PATIENT
  Age: 72 Year
  Sex: Female

DRUGS (1)
  1. VERMOX [Suspect]
     Active Substance: MEBENDAZOLE
     Indication: BLASTOCYSTIS INFECTION
     Dosage: 3 DAYS, AND REPEAT IN 2 WEEKS
     Route: 048
     Dates: start: 20160115

REACTIONS (6)
  - Muscle disorder [Unknown]
  - Haematochezia [Unknown]
  - Abnormal faeces [Unknown]
  - Product use issue [Unknown]
  - Off label use [Unknown]
  - Dizziness [Unknown]

NARRATIVE: CASE EVENT DATE: 20160115
